FAERS Safety Report 7127096-0 (Version None)
Quarter: 2010Q4

REPORT INFORMATION
  Report Type: 
  Country: None (occurrence: None)
  Receive Date: 20101129
  Receipt Date: 20100223
  Transmission Date: 20110411
  Serious: No
  Sender: FDA-Public Use
  Company Number: US-PFIZER INC-2010025190

PATIENT
  Sex: Male
  Weight: 88.435 kg

DRUGS (2)
  1. VIAGRA [Suspect]
     Indication: ERECTILE DYSFUNCTION
     Dosage: 25 MG, AS NEEDED
     Dates: start: 20100210
  2. WARFARIN [Concomitant]
     Dosage: 5 MG, UNK

REACTIONS (1)
  - TINNITUS [None]
